FAERS Safety Report 8515196-X (Version None)
Quarter: 2012Q3

REPORT INFORMATION
  Report Type: 
  Country: None (occurrence: None)
  Receive Date: 20120717
  Receipt Date: 20120710
  Transmission Date: 20120928
  Serious: Yes (Other)
  Sender: FDA-Public Use
  Company Number: JP-GLAXOSMITHKLINE-B0814509A

PATIENT
  Age: 15 Year
  Sex: Female
  Weight: 42 kg

DRUGS (2)
  1. LAMICTAL [Suspect]
     Indication: PRODUCT USED FOR UNKNOWN INDICATION
     Route: 048
     Dates: start: 20120625
  2. VALPROATE SODIUM [Concomitant]
     Route: 048

REACTIONS (2)
  - ERYTHEMA MULTIFORME [None]
  - SKIN DISORDER [None]
